FAERS Safety Report 11046240 (Version 2)
Quarter: 2015Q2

REPORT INFORMATION
  Report Type: Spontaneous
  Country: US (occurrence: US)
  Receive Date: 20150418
  Receipt Date: 20150501
  Transmission Date: 20150821
  Serious: Yes (Death)
  Sender: FDA-Public Use
  Company Number: US-AMGEN-USASP2015036257

PATIENT
  Age: 94 Year
  Sex: Male
  Weight: 62.59 kg

DRUGS (17)
  1. MYSOLINE [Concomitant]
     Active Substance: PRIMIDONE
     Dosage: 50 MG, QD
     Route: 048
  2. IMDUR [Concomitant]
     Active Substance: ISOSORBIDE MONONITRATE
     Dosage: 30 MG, QD
     Route: 048
  3. CITRACAL + D                       /01606701/ [Concomitant]
     Dosage: 1 DF, BID
     Route: 048
  4. ASPIRIN                            /00002701/ [Concomitant]
     Active Substance: ASPIRIN
     Dosage: 81 MG, QD
     Route: 048
  5. OMEPRAZOLE. [Concomitant]
     Active Substance: OMEPRAZOLE
     Dosage: 20 MG, BID
     Route: 048
  6. ATROVENT HFA [Concomitant]
     Active Substance: IPRATROPIUM BROMIDE
     Dosage: 17 MCG/ACT, 2 PUFFS TID
     Route: 045
  7. PROLIA [Suspect]
     Active Substance: DENOSUMAB
     Indication: OSTEOPOROSIS
     Dosage: 60 MG/ML, Q6MO
     Route: 058
     Dates: start: 20131118
  8. DELTASONE                          /00044701/ [Concomitant]
     Dosage: 20 MG, QD
     Route: 048
  9. COZAAR [Concomitant]
     Active Substance: LOSARTAN POTASSIUM
     Dosage: 25 MG, QD
     Route: 048
  10. ZOCOR [Concomitant]
     Active Substance: SIMVASTATIN
     Dosage: 20 MG, QD
     Route: 048
  11. PROVENTIL                          /00139501/ [Concomitant]
     Dosage: 0.083 % (2.5 MG/3ML), TID
     Route: 045
  12. SYMBICORT [Concomitant]
     Active Substance: BUDESONIDE\FORMOTEROL FUMARATE DIHYDRATE
     Dosage: 160-4.5 MCG/ACT, 2 PUFFS, BID
     Route: 045
  13. TENORMIN [Concomitant]
     Active Substance: ATENOLOL
     Dosage: 25 MG, QD
     Route: 048
  14. SYSTANE ULTRA [Concomitant]
     Active Substance: POLYETHYLENE GLYCOL 400\PROPYLENE GLYCOL
     Dosage: 1 DROP BID
  15. VISION VITE [Concomitant]
     Route: 048
  16. ATROVENT [Concomitant]
     Active Substance: IPRATROPIUM BROMIDE
     Dosage: 0.03 %, 2 SPRAYS TID
     Route: 045
  17. NASAREL                            /00456601/ [Concomitant]
     Dosage: 0.025 %, BID
     Route: 045

REACTIONS (2)
  - Coronary artery disease [Fatal]
  - Chronic obstructive pulmonary disease [Fatal]
